FAERS Safety Report 21701259 (Version 1)
Quarter: 2022Q4

REPORT INFORMATION
  Report Type: Spontaneous
  Country: US (occurrence: None)
  Receive Date: 20221208
  Receipt Date: 20221208
  Transmission Date: 20230113
  Serious: Yes (Hospitalization)
  Sender: FDA-Public Use
  Company Number: None

PATIENT
  Sex: Male
  Weight: 79.2 kg

DRUGS (1)
  1. KYMRIAH [Suspect]
     Active Substance: TISAGENLECLEUCEL
     Indication: Diffuse large B-cell lymphoma

REACTIONS (1)
  - Immune effector cell-associated neurotoxicity syndrome [None]
